FAERS Safety Report 18205729 (Version 3)
Quarter: 2020Q4

REPORT INFORMATION
  Report Type: Report from Study
  Country: ES (occurrence: ES)
  Receive Date: 20200828
  Receipt Date: 20201009
  Transmission Date: 20210113
  Serious: Yes (Other)
  Sender: FDA-Public Use
  Company Number: ES-VIIV HEALTHCARE LIMITED-ES2020GSK170810

PATIENT
  Age: 40 Year
  Sex: Male
  Weight: 58.8 kg

DRUGS (5)
  1. MARAVIROC [Suspect]
     Active Substance: MARAVIROC
     Indication: COVID-19
     Dosage: 300 MG, BID
  2. OMEPRAZOL [Concomitant]
     Active Substance: OMEPRAZOLE
     Indication: COVID-19
     Dosage: 20 MG, QD
     Route: 048
     Dates: start: 20200818
  3. PARACETAMOL [Concomitant]
     Active Substance: ACETAMINOPHEN
     Indication: COVID-19
     Dosage: 650 MG, TID
     Route: 048
     Dates: start: 20200818
  4. METAMIZOLE [Concomitant]
     Active Substance: METAMIZOLE
     Indication: COVID-19
     Dosage: 575 MG, TID
     Route: 048
     Dates: start: 20200818
  5. ENOXAPARIN [Concomitant]
     Active Substance: ENOXAPARIN
     Indication: COVID-19
     Dosage: 40 MG, QD
     Route: 058
     Dates: start: 20200818

REACTIONS (1)
  - Hypertransaminasaemia [Recovered/Resolved]

NARRATIVE: CASE EVENT DATE: 20200824
